FAERS Safety Report 6807736-3 (Version None)
Quarter: 2010Q2

REPORT INFORMATION
  Report Type: 
  Country: None (occurrence: None)
  Receive Date: 20100629
  Receipt Date: 20081216
  Transmission Date: 20101027
  Serious: No
  Sender: FDA-Public Use
  Company Number: US-PFIZER INC-2008156241

PATIENT
  Sex: Female

DRUGS (2)
  1. ALDACTONE [Suspect]
     Route: 048
  2. SYNTHROID [Concomitant]

REACTIONS (1)
  - REFLUX GASTRITIS [None]
